FAERS Safety Report 7978384-7 (Version None)
Quarter: 2011Q4

REPORT INFORMATION
  Report Type: 
  Country: None (occurrence: None)
  Receive Date: 20111214
  Receipt Date: 20111205
  Transmission Date: 20120403
  Serious: Yes (Other)
  Sender: FDA-Public Use
  Company Number: AG-JNJFOC-20111203468

PATIENT
  Sex: Female
  Weight: 90.72 kg

DRUGS (1)
  1. DOXORUBICIN HCL [Suspect]
     Indication: OVARIAN CANCER
     Route: 042
     Dates: start: 20110401, end: 20110101

REACTIONS (1)
  - INTESTINAL MASS [None]
